FAERS Safety Report 9831408 (Version 1)
Quarter: 2014Q1

REPORT INFORMATION
  Report Type: Spontaneous
  Country: FR (occurrence: FR)
  Receive Date: 20140121
  Receipt Date: 20140121
  Transmission Date: 20141002
  Serious: Yes (Life-Threatening)
  Sender: FDA-Public Use
  Company Number: FR-BRISTOL-MYERS SQUIBB COMPANY-20027199

PATIENT
  Age: 38 Year
  Sex: Male

DRUGS (4)
  1. BARACLUDE [Suspect]
     Route: 048
     Dates: start: 20071123
  2. INVIRASE [Suspect]
     Dosage: FILM COATED TABLET
     Dates: start: 20071123
  3. NORVIR [Suspect]
     Dosage: SOFT CAPSULE
     Dates: start: 20071123
  4. TRUVADA [Suspect]
     Dosage: FILM COATED TABLET(EMTRICITABINE 200MG, TENOFOVIR 245MG)
     Dates: start: 20071123

REACTIONS (2)
  - Depression [Recovered/Resolved]
  - Suicide attempt [Recovered/Resolved]
